FAERS Safety Report 5899958-3 (Version None)
Quarter: 2008Q3

REPORT INFORMATION
  Report Type: 
  Country: None (occurrence: None)
  Receive Date: 20080926
  Receipt Date: 20080922
  Transmission Date: 20090109
  Serious: Yes (Hospitalization)
  Sender: FDA-Public Use
  Company Number: B0533956A

PATIENT
  Age: 70 Year
  Sex: Female
  Weight: 45 kg

DRUGS (7)
  1. VALTREX [Suspect]
     Indication: HERPES ZOSTER
     Dosage: 1000MG PER DAY
     Route: 048
     Dates: start: 20080814, end: 20080815
  2. AMLODIPINE BESYLATE [Concomitant]
     Indication: HYPERTENSION
     Dosage: 10MG PER DAY
     Route: 048
  3. CARDENALIN [Concomitant]
     Indication: HYPERTENSION
     Dosage: 3MG PER DAY
     Route: 048
  4. BLOPRESS [Concomitant]
     Indication: HYPERTENSION
     Dosage: 12MG PER DAY
     Route: 048
  5. CATAPRES [Concomitant]
     Indication: HYPERTENSION
     Dosage: 150MCG PER DAY
     Route: 048
  6. TAGAMET [Concomitant]
     Indication: GASTRITIS
     Dosage: 200MG PER DAY
     Route: 048
  7. PRECIPITATED CALCIUM CARBONATE [Concomitant]
     Indication: BLOOD PHOSPHORUS INCREASED
     Dosage: 3G PER DAY
     Route: 048

REACTIONS (11)
  - ALTERED STATE OF CONSCIOUSNESS [None]
  - COORDINATION ABNORMAL [None]
  - DYSARTHRIA [None]
  - DYSLALIA [None]
  - DYSPHAGIA [None]
  - DYSSTASIA [None]
  - FEELING ABNORMAL [None]
  - GAIT DISTURBANCE [None]
  - IRRITABILITY [None]
  - NAUSEA [None]
  - NERVOUS SYSTEM DISORDER [None]
